FAERS Safety Report 20803626 (Version 1)
Quarter: 2022Q2

REPORT INFORMATION
  Report Type: Spontaneous
  Country: US (occurrence: None)
  Receive Date: 20220509
  Receipt Date: 20220509
  Transmission Date: 20220721
  Serious: Yes (Hospitalization, Other)
  Sender: FDA-Public Use
  Company Number: 2022A178144

PATIENT
  Age: 31 Year
  Sex: Female

DRUGS (3)
  1. OLAPARIB [Suspect]
     Active Substance: OLAPARIB
     Indication: Triple negative breast cancer
     Dosage: UNK
     Route: 048
     Dates: start: 202111, end: 202202
  2. OLAPARIB [Suspect]
     Active Substance: OLAPARIB
     Indication: Triple negative breast cancer
     Dosage: UNK
     Route: 048
     Dates: start: 202103
  3. KEYTRUDA [Suspect]
     Active Substance: PEMBROLIZUMAB
     Indication: Triple negative breast cancer
     Dosage: 400MG EVERY 6 WEEKS
     Route: 065
     Dates: start: 202112

REACTIONS (9)
  - Transfusion [Unknown]
  - COVID-19 [Unknown]
  - Malignant neoplasm progression [Unknown]
  - Gastroenteritis viral [Unknown]
  - Nasopharyngitis [Unknown]
  - Axillary mass [Unknown]
  - Cough [Not Recovered/Not Resolved]
  - Fatigue [Unknown]
  - Laboratory test abnormal [Recovering/Resolving]

NARRATIVE: CASE EVENT DATE: 20211201
